FAERS Safety Report 5380909-5 (Version None)
Quarter: 2007Q3

REPORT INFORMATION
  Report Type: 
  Country: None (occurrence: None)
  Receive Date: 20070702
  Receipt Date: 20060829
  Transmission Date: 20080115
  Serious: Yes (Other)
  Sender: FDA-Public Use
  Company Number: SPV1-2006-00710

PATIENT
  Age: 56 Year
  Sex: Male

DRUGS (3)
  1. PENTASA [Suspect]
     Indication: COLITIS ULCERATIVE
     Dosage: 2250 MG DAILY, ORAL
     Route: 048
     Dates: start: 20050916, end: 20051012
  2. CEFMETAZOLE SODIUM          (CEFMETAZOLE SODIUM) [Concomitant]
  3. RILMAZAFONE HYDROCHLORIDE               (RILMAZAFONE HYDROCHLORIDE) [Concomitant]

REACTIONS (1)
  - LIVER DISORDER [None]
